FAERS Safety Report 8902435 (Version 2)
Quarter: 2012Q4

REPORT INFORMATION
  Report Type: 
  Country: US (occurrence: US)
  Receive Date: 20121112
  Receipt Date: 20121120
  Transmission Date: 20130627
  Serious: Yes (Hospitalization)
  Sender: FDA-Public Use
  Company Number: US-PFIZER INC-2012279249

PATIENT
  Age: 68 Year
  Sex: Female
  Weight: 96.15 kg

DRUGS (6)
  1. TIKOSYN [Suspect]
     Indication: ATRIAL FIBRILLATION
     Dosage: 250 ug, 2x/day
     Dates: start: 20120504
  2. TIKOSYN [Suspect]
     Dosage: UNK
     Dates: start: 2012, end: 2012
  3. TIKOSYN [Suspect]
     Dosage: 250 ug, 2x/day
     Dates: start: 2012
  4. FLECAINIDE [Suspect]
     Indication: CARDIAC DYSRHYTHMIAS
     Dosage: UNK
  5. CARDIZEM [Suspect]
     Indication: CARDIAC DYSRHYTHMIAS
     Dosage: UNK
     Dates: start: 201210, end: 201210
  6. AMIODARONE HCL [Suspect]
     Indication: CARDIAC DYSRHYTHMIAS
     Dosage: UNK

REACTIONS (5)
  - Drug ineffective [Unknown]
  - Atrial flutter [Unknown]
  - Drug intolerance [Unknown]
  - Malabsorption [Unknown]
  - Blood pressure decreased [Unknown]
